FAERS Safety Report 19309831 (Version 4)
Quarter: 2021Q4

REPORT INFORMATION
  Report Type: Spontaneous
  Country: JP (occurrence: None)
  Receive Date: 20210526
  Receipt Date: 20211119
  Transmission Date: 20220303
  Serious: Yes (Other)
  Sender: FDA-Public Use
  Company Number: 2021A448122

PATIENT
  Age: 79 Year
  Sex: Male
  Weight: 46 kg

DRUGS (18)
  1. IMFINZI [Suspect]
     Active Substance: DURVALUMAB
     Indication: Small cell lung cancer
     Dosage: 1500.0MG UNKNOWN
     Route: 041
     Dates: start: 20201028, end: 20201028
  2. IMFINZI [Suspect]
     Active Substance: DURVALUMAB
     Indication: Small cell lung cancer
     Dosage: 1500.0MG UNKNOWN
     Route: 041
     Dates: start: 20201216, end: 20201216
  3. IMFINZI [Suspect]
     Active Substance: DURVALUMAB
     Indication: Small cell lung cancer
     Dosage: 1500.0MG UNKNOWN
     Route: 041
     Dates: start: 20210113, end: 20210113
  4. IMFINZI [Suspect]
     Active Substance: DURVALUMAB
     Indication: Small cell lung cancer
     Dosage: 1500.0MG UNKNOWN
     Route: 041
     Dates: start: 20210217, end: 20210217
  5. IMFINZI [Suspect]
     Active Substance: DURVALUMAB
     Indication: Small cell lung cancer
     Dosage: 1500.0MG UNKNOWN
     Route: 041
     Dates: start: 20210317, end: 20210519
  6. CARBOPLATIN [Concomitant]
     Active Substance: CARBOPLATIN
     Indication: Small cell lung cancer
     Dosage: EVERY THREE WEEKS480.0MG UNKNOWN
     Route: 041
     Dates: start: 20201028, end: 20201028
  7. CARBOPLATIN [Concomitant]
     Active Substance: CARBOPLATIN
     Indication: Small cell lung cancer
     Dosage: EVERY THREE WEEKS380.0MG UNKNOWN
     Route: 041
     Dates: start: 20201216, end: 20201216
  8. CARBOPLATIN [Concomitant]
     Active Substance: CARBOPLATIN
     Indication: Small cell lung cancer
     Dosage: EVERY THREE WEEKS380.0MG UNKNOWN
     Route: 041
     Dates: start: 20210113, end: 20210113
  9. CARBOPLATIN [Concomitant]
     Active Substance: CARBOPLATIN
     Indication: Small cell lung cancer
     Dosage: EVERY THREE WEEKS380.0MG UNKNOWN
     Route: 041
     Dates: start: 20210217, end: 20210217
  10. ETOPOSIDE [Concomitant]
     Active Substance: ETOPOSIDE
     Indication: Small cell lung cancer
     Dosage: ON DAY 1, 2, AND 3 OF EACH COURSES, DOSE UNKNOWN
     Route: 041
     Dates: start: 20201028, end: 20201030
  11. ETOPOSIDE [Concomitant]
     Active Substance: ETOPOSIDE
     Indication: Small cell lung cancer
     Dosage: ON DAY 1, 2, AND 3 OF EACH COURSES, DOSE UNKNOWN
     Route: 041
     Dates: start: 20201216, end: 20210218
  12. ETOPOSIDE [Concomitant]
     Active Substance: ETOPOSIDE
     Indication: Small cell lung cancer
     Dosage: ON DAY 1, 2, AND 3 OF EACH COURSES, DOSE UNKNOWN
     Route: 041
     Dates: start: 20210113, end: 20210115
  13. ETOPOSIDE [Concomitant]
     Active Substance: ETOPOSIDE
     Indication: Small cell lung cancer
     Dosage: ON DAY 1, 2, AND 3 OF EACH COURSES, DOSE UNKNOWN
     Route: 041
     Dates: start: 20210217, end: 20210219
  14. CILOSTAZOL [Concomitant]
     Active Substance: CILOSTAZOL
     Indication: Transient ischaemic attack
     Route: 048
  15. VONOPRAZAN FUMARATE [Concomitant]
     Active Substance: VONOPRAZAN FUMARATE
     Dosage: IN THE MORNING, FOR 14 DAYS
     Route: 048
     Dates: start: 20201110
  16. GLYCOPYRRONIUM\INDACATEROL [Concomitant]
     Active Substance: GLYCOPYRRONIUM\INDACATEROL
     Dosage: DOSE UNKNOWN, IN THE MORNING, 14 CP
     Route: 048
     Dates: start: 20201110
  17. MAGNESIUM OXIDE [Concomitant]
     Active Substance: MAGNESIUM OXIDE
     Dosage: AFTER EACH MEALS, FOR 10 DAYS, FREE COMMENT: SELF-ADJUSTABLE
     Route: 048
     Dates: start: 20201110
  18. FLUVASTATIN SODIUM [Concomitant]
     Active Substance: FLUVASTATIN SODIUM
     Dosage: AFTER DINNER, FOR 3 DAYS
     Route: 048
     Dates: start: 20201110

REACTIONS (4)
  - Neutrophil count decreased [Recovering/Resolving]
  - Metastases to central nervous system [Unknown]
  - Hyponatraemia [Recovered/Resolved]
  - Nausea [Not Recovered/Not Resolved]

NARRATIVE: CASE EVENT DATE: 20201102
